FAERS Safety Report 10045340 (Version 4)
Quarter: 2014Q2

REPORT INFORMATION
  Report Type: Spontaneous
  Country: US (occurrence: US)
  Receive Date: 20140328
  Receipt Date: 20140530
  Transmission Date: 20141212
  Serious: Yes (Hospitalization, Other)
  Sender: FDA-Public Use
  Company Number: US-JNJFOC-20140217098

PATIENT
  Age: 77 Year
  Sex: Male
  Weight: 89.81 kg

DRUGS (22)
  1. XARELTO [Suspect]
     Indication: ATRIAL FIBRILLATION
     Route: 048
  2. XARELTO [Suspect]
     Indication: ATRIAL FIBRILLATION
     Route: 048
     Dates: start: 20140211
  3. XARELTO [Suspect]
     Indication: ATRIAL FIBRILLATION
     Route: 048
  4. XARELTO [Suspect]
     Indication: CEREBROVASCULAR ACCIDENT PROPHYLAXIS
     Route: 048
  5. XARELTO [Suspect]
     Indication: CEREBROVASCULAR ACCIDENT PROPHYLAXIS
     Route: 048
  6. XARELTO [Suspect]
     Indication: CEREBROVASCULAR ACCIDENT PROPHYLAXIS
     Route: 048
     Dates: start: 20140211
  7. XARELTO [Suspect]
     Indication: CEREBROVASCULAR ACCIDENT
     Route: 048
     Dates: start: 20140211
  8. XARELTO [Suspect]
     Indication: CEREBROVASCULAR ACCIDENT
     Route: 048
  9. XARELTO [Suspect]
     Indication: CEREBROVASCULAR ACCIDENT
     Route: 048
  10. XARELTO [Suspect]
     Indication: DEEP VEIN THROMBOSIS
     Route: 048
  11. XARELTO [Suspect]
     Indication: DEEP VEIN THROMBOSIS
     Route: 048
     Dates: start: 20140211
  12. XARELTO [Suspect]
     Indication: DEEP VEIN THROMBOSIS
     Route: 048
  13. ACETYLSALICYLIC ACID [Suspect]
     Indication: PRODUCT USED FOR UNKNOWN INDICATION
     Route: 065
     Dates: start: 20100930
  14. CINNAMON [Concomitant]
     Route: 065
     Dates: start: 20120824
  15. NATTOKINASE [Concomitant]
     Dosage: 1 CAP DAILY- OCCASIONALLY
     Route: 065
     Dates: start: 20140114
  16. LOSARTAN POTASSIUM [Concomitant]
     Route: 065
     Dates: start: 20130828
  17. MULTIVITAMINS [Concomitant]
     Route: 065
     Dates: start: 20130717
  18. VITAMIN D3 [Concomitant]
     Route: 065
     Dates: start: 20120410
  19. DOXAZOSIN MESILATE [Concomitant]
     Dosage: 1/2 TABLET AT BEDTIME
     Route: 065
     Dates: start: 20111027
  20. FINASTERIDE [Concomitant]
     Route: 065
     Dates: start: 20110801
  21. LUNESTA [Concomitant]
     Dosage: AS NEEDED RARELY
     Route: 065
     Dates: start: 20100930
  22. FISH OIL [Concomitant]
     Dosage: 2 TABS TWICE A DAY
     Route: 065
     Dates: start: 20100930

REACTIONS (5)
  - Streptococcal sepsis [Unknown]
  - Pyelonephritis [Unknown]
  - Haematuria [Recovered/Resolved]
  - Atrial fibrillation [Recovered/Resolved]
  - Urinary tract infection [Unknown]
